FAERS Safety Report 9918782 (Version 3)
Quarter: 2014Q1

REPORT INFORMATION
  Report Type: Spontaneous
  Country: DE (occurrence: DE)
  Receive Date: 20140224
  Receipt Date: 20140314
  Transmission Date: 20141002
  Serious: Yes (Hospitalization)
  Sender: FDA-Public Use
  Company Number: DE-BAYER-2013-140238

PATIENT
  Age: 65 Year
  Sex: Male
  Weight: 90 kg

DRUGS (5)
  1. BETAFERON [Suspect]
     Indication: MULTIPLE SCLEROSIS
     Route: 058
  2. L-THYROXIN [Concomitant]
     Indication: THYROID HORMONE REPLACEMENT THERAPY
     Dosage: 125 ?G, QD
     Dates: start: 20020312
  3. DICLOFENAC SODIUM [Concomitant]
  4. LEVOFLOXACIN [Concomitant]
     Indication: PERIPHERAL NERVE NEUROSTIMULATION
     Dosage: 500 MG, UNK
  5. NITROFURANTOIN [Concomitant]
     Indication: PERIPHERAL NERVE NEUROSTIMULATION
     Dosage: 100 MG, UNK

REACTIONS (5)
  - Multiple sclerosis relapse [None]
  - Hepatic cirrhosis [None]
  - Hepatitis [Not Recovered/Not Resolved]
  - Liver function test abnormal [Not Recovered/Not Resolved]
  - Transaminases increased [Not Recovered/Not Resolved]
